FAERS Safety Report 11360801 (Version 1)
Quarter: 2015Q3

REPORT INFORMATION
  Report Type: Spontaneous
  Country: US (occurrence: US)
  Receive Date: 20150810
  Receipt Date: 20150810
  Transmission Date: 20151125
  Serious: No
  Sender: FDA-Public Use
  Company Number: US-BAYER-2015-389099

PATIENT
  Age: 18 Year
  Sex: Female

DRUGS (1)
  1. SKYLA [Suspect]
     Active Substance: LEVONORGESTREL
     Indication: MENSTRUAL CYCLE MANAGEMENT
     Dosage: 14 MCG/24HR, CONT
     Route: 015
     Dates: start: 201507

REACTIONS (2)
  - Menorrhagia [None]
  - Off label use of device [None]

NARRATIVE: CASE EVENT DATE: 2015
